FAERS Safety Report 10083314 (Version 1)
Quarter: 2014Q2

REPORT INFORMATION
  Report Type: Spontaneous
  Country: US (occurrence: US)
  Receive Date: 20140417
  Receipt Date: 20140417
  Transmission Date: 20141212
  Serious: Yes (Other)
  Sender: FDA-Public Use
  Company Number: US-RANBAXY-2014US-80344

PATIENT
  Age: 80 Year
  Sex: Female
  Weight: 86.17 kg

DRUGS (1)
  1. ACETAMINOPHEN [Suspect]
     Indication: ANALGESIC THERAPY
     Dosage: 1 DF, SINGLE
     Route: 065
     Dates: start: 20140401, end: 20140401

REACTIONS (1)
  - Anuria [Not Recovered/Not Resolved]
